FAERS Safety Report 23503224 (Version 1)
Quarter: 2024Q1

REPORT INFORMATION
  Report Type: Report from Study
  Country: US (occurrence: None)
  Receive Date: 20240208
  Receipt Date: 20240208
  Transmission Date: 20240410
  Serious: Yes (Other)
  Sender: FDA-Public Use
  Company Number: 2024A021565

PATIENT
  Age: 70 Year
  Sex: Female
  Weight: 96.6 kg

DRUGS (3)
  1. SYMBICORT [Suspect]
     Active Substance: BUDESONIDE\FORMOTEROL FUMARATE DIHYDRATE
     Dosage: DOSE AND FREQUENCY UNKNOWN UNKNOWN
     Route: 055
  2. BREZTRI [Suspect]
     Active Substance: BUDESONIDE\FORMOTEROL\GLYCOPYRROLATE
     Dosage: 2 INHALATIONS
     Route: 055
  3. ROSUVASTATIN [Suspect]
     Active Substance: ROSUVASTATIN
     Dosage: UNKNOWN
     Route: 048

REACTIONS (16)
  - Myocardial fibrosis [Unknown]
  - Lung abscess [Unknown]
  - Bronchiectasis [Unknown]
  - Cardiomegaly [Unknown]
  - Restrictive pulmonary disease [Unknown]
  - Respiratory failure [Unknown]
  - Interstitial lung disease [Unknown]
  - Productive cough [Unknown]
  - Obesity [Unknown]
  - Anaemia [Unknown]
  - Carboxyhaemoglobinaemia [Unknown]
  - Pulmonary vascular disorder [Unknown]
  - Oxygen saturation decreased [Unknown]
  - Chronic obstructive pulmonary disease [Unknown]
  - Cough [Unknown]
  - Drug ineffective [Unknown]
